FAERS Safety Report 24818235 (Version 1)
Quarter: 2025Q1

REPORT INFORMATION
  Report Type: Spontaneous
  Country: US (occurrence: US)
  Receive Date: 20250108
  Receipt Date: 20250108
  Transmission Date: 20250408
  Serious: No
  Sender: Haleon PLC
  Company Number: US-HALEON-2221043

PATIENT

DRUGS (3)
  1. THERAFLU SEVERE COLD RELIEF SOFT CHEWS [Suspect]
     Active Substance: ACETAMINOPHEN\DEXTROMETHORPHAN HYDROBROMIDE
     Indication: Rhinorrhoea
  2. THERAFLU SEVERE COLD RELIEF SOFT CHEWS [Suspect]
     Active Substance: ACETAMINOPHEN\DEXTROMETHORPHAN HYDROBROMIDE
     Indication: Lacrimation increased
  3. THERAFLU SEVERE COLD RELIEF SOFT CHEWS [Suspect]
     Active Substance: ACETAMINOPHEN\DEXTROMETHORPHAN HYDROBROMIDE
     Indication: Nasal congestion

REACTIONS (2)
  - Cough [Not Recovered/Not Resolved]
  - Headache [Not Recovered/Not Resolved]

NARRATIVE: CASE EVENT DATE: 20250107
